FAERS Safety Report 7603352-4 (Version None)
Quarter: 2011Q3

REPORT INFORMATION
  Report Type: 
  Country: None (occurrence: None)
  Receive Date: 20110701
  Receipt Date: 20110525
  Transmission Date: 20111222
  Serious: Yes (Hospitalization)
  Sender: FDA-Public Use
  Company Number: UCM201105-000014

PATIENT
  Age: 85 Year
  Sex: Male

DRUGS (1)
  1. MELOXICAM [Suspect]

REACTIONS (3)
  - TOXIC EPIDERMAL NECROLYSIS [None]
  - GOUTY ARTHRITIS [None]
  - SKIN HAEMORRHAGE [None]
